FAERS Safety Report 6086272-9 (Version None)
Quarter: 2009Q1

REPORT INFORMATION
  Report Type: 
  Country: None (occurrence: None)
  Receive Date: 20090217
  Receipt Date: 20080924
  Transmission Date: 20090719
  Serious: Yes (Hospitalization)
  Sender: FDA-Public Use
  Company Number: MC200800409

PATIENT
  Age: 70 Year
  Sex: Female

DRUGS (5)
  1. ANGIOMAX [Suspect]
     Indication: PERCUTANEOUS CORONARY INTERVENTION
     Dosage: 0.75 MG/KG, BOLUS, INTRAVENOUS; 0.3 MG/KG, BOLUS, INTRAVENOUS; INTRAVENOUS
     Route: 042
     Dates: start: 20080903, end: 20080903
  2. ANGIOMAX [Suspect]
     Indication: PERCUTANEOUS CORONARY INTERVENTION
     Dosage: 0.75 MG/KG, BOLUS, INTRAVENOUS; 0.3 MG/KG, BOLUS, INTRAVENOUS; INTRAVENOUS
     Route: 042
     Dates: start: 20080903, end: 20080903
  3. ANGIOMAX [Suspect]
     Indication: PERCUTANEOUS CORONARY INTERVENTION
     Dosage: 0.75 MG/KG, BOLUS, INTRAVENOUS; 0.3 MG/KG, BOLUS, INTRAVENOUS; INTRAVENOUS
     Route: 042
     Dates: start: 20080903, end: 20080903
  4. PLAVIX [Concomitant]
  5. ASPIRIN [Concomitant]

REACTIONS (1)
  - COAGULATION TIME ABNORMAL [None]
